FAERS Safety Report 8583984-X (Version None)
Quarter: 2012Q3

REPORT INFORMATION
  Report Type: 
  Country: None (occurrence: None)
  Receive Date: 20120810
  Receipt Date: 20120803
  Transmission Date: 20120928
  Serious: Yes (Hospitalization)
  Sender: FDA-Public Use
  Company Number: IT-009507513-1208ITA001616

PATIENT

DRUGS (3)
  1. FLUTICASONE PROPIONATE/SALMETEROL [Suspect]
     Indication: CHRONIC OBSTRUCTIVE PULMONARY DISEASE
     Dosage: 3 DF QD
     Route: 055
     Dates: start: 20120101, end: 20120710
  2. ASPIRIN [Suspect]
     Indication: PROPHYLAXIS
     Dosage: 100 MG,QD
     Route: 048
     Dates: start: 20120101, end: 20120710
  3. SIMVASTATIN [Suspect]
     Indication: HYPERCHOLESTEROLAEMIA
     Dosage: 1 DF, QD
     Route: 048
     Dates: start: 20120101, end: 20120710

REACTIONS (1)
  - RENAL PAIN [None]
